FAERS Safety Report 21509106 (Version 1)
Quarter: 2022Q4

REPORT INFORMATION
  Report Type: Spontaneous
  Country: GB (occurrence: GB)
  Receive Date: 20221026
  Receipt Date: 20221026
  Transmission Date: 20230113
  Serious: Yes (Hospitalization, Other)
  Sender: FDA-Public Use
  Company Number: GB-BAXTER-2022BAX021446

PATIENT
  Age: 7 Year
  Sex: Female
  Weight: 21 kg

DRUGS (29)
  1. ACETAMINOPHEN [Suspect]
     Active Substance: ACETAMINOPHEN
     Indication: Constipation
     Dosage: UNK
     Route: 065
     Dates: start: 20220120
  2. ALFENTANIL [Suspect]
     Active Substance: ALFENTANIL
     Indication: Product used for unknown indication
     Dosage: FIFTH DOSE
     Route: 065
     Dates: start: 20220627, end: 20220627
  3. ALFENTANIL [Suspect]
     Active Substance: ALFENTANIL
     Indication: Sedative therapy
     Dosage: FIRST DOSE
     Route: 065
     Dates: start: 20220110, end: 20220110
  4. ALFENTANIL [Suspect]
     Active Substance: ALFENTANIL
     Dosage: FOURTH DOSE
     Route: 065
     Dates: start: 20220404, end: 20220404
  5. ALFENTANIL [Suspect]
     Active Substance: ALFENTANIL
     Dosage: SECOND DOSE
     Route: 065
     Dates: start: 20220207, end: 20220207
  6. ALFENTANIL [Suspect]
     Active Substance: ALFENTANIL
     Dosage: THIRD DOSE
     Route: 065
     Dates: start: 20220307, end: 20220307
  7. ALFENTANIL [Suspect]
     Active Substance: ALFENTANIL
     Dosage: SIXTH DOSE
     Route: 065
     Dates: start: 20220926, end: 20220926
  8. CLOBAZAM [Suspect]
     Active Substance: CLOBAZAM
     Indication: Epilepsy
     Dosage: UNK
     Route: 065
     Dates: start: 201910
  9. CLONIDINE [Suspect]
     Active Substance: CLONIDINE
     Indication: Sleep disorder
     Dosage: UNK
     Route: 065
     Dates: start: 20210101
  10. MIDAZOLAM [Suspect]
     Active Substance: MIDAZOLAM
     Indication: Sedative therapy
     Dosage: (WITH SECOND DOSE OF STUDY DRUG) DOSE AND FREQUENCY NOT REPORTED
     Route: 065
     Dates: start: 20220207, end: 20220207
  11. MIDAZOLAM [Suspect]
     Active Substance: MIDAZOLAM
     Indication: Product used for unknown indication
     Dosage: (WITH FIFTH DOSE OF STUDY DRUG) DOSE AND FREQUENCY NOT REPORTED
     Route: 065
     Dates: start: 20220627, end: 20220627
  12. MIDAZOLAM [Suspect]
     Active Substance: MIDAZOLAM
     Dosage: (WITH THIRD DOSE OF STUDY DRUG) DOSE AND FREQUENCY NOT REPORTED
     Route: 065
     Dates: start: 20220307, end: 20220307
  13. MIDAZOLAM [Suspect]
     Active Substance: MIDAZOLAM
     Dosage: (WITH FOURTH DOSE OF STUDY DRUG) DOSE AND FREQUENCY NOT REPORTED
     Route: 065
     Dates: start: 20220404, end: 20220404
  14. MIDAZOLAM [Suspect]
     Active Substance: MIDAZOLAM
     Dosage: (WITH SIXTH DOSE OF STUDY DRUG) DOSE AND FREQUENCY NOT REPORTED
     Route: 065
     Dates: start: 20220926, end: 20220926
  15. MELATONIN [Suspect]
     Active Substance: MELATONIN
     Indication: Sleep disorder
     Dosage: UNK
     Route: 065
     Dates: start: 202008
  16. NITROUS OXIDE [Suspect]
     Active Substance: NITROUS OXIDE
     Indication: Sedative therapy
     Dosage: UNK
     Route: 065
     Dates: start: 20220110
  17. PROPOFOL [Suspect]
     Active Substance: PROPOFOL
     Indication: Product used for unknown indication
     Dosage: THIRD DOSE
     Route: 065
     Dates: start: 20220307, end: 20220307
  18. PROPOFOL [Suspect]
     Active Substance: PROPOFOL
     Indication: Sedative therapy
     Dosage: SECOND DOSE
     Route: 065
     Dates: start: 20220207, end: 20220207
  19. PROPOFOL [Suspect]
     Active Substance: PROPOFOL
     Dosage: FOURTH DOSE
     Route: 065
     Dates: start: 20220404, end: 20220404
  20. PROPOFOL [Suspect]
     Active Substance: PROPOFOL
     Dosage: SIXTH DOSE
     Route: 065
     Dates: start: 20220926, end: 20220926
  21. PROPOFOL [Suspect]
     Active Substance: PROPOFOL
     Dosage: FIFTH DOSE
     Route: 065
     Dates: start: 20220627, end: 20220627
  22. PROPOFOL [Suspect]
     Active Substance: PROPOFOL
     Dosage: FIRST DOSE
     Route: 065
     Dates: start: 20220110, end: 20220110
  23. SEVOFLURANE [Suspect]
     Active Substance: SEVOFLURANE
     Indication: Product used for unknown indication
     Dosage: 2.6 %, SINGLE, THIRD DOSE
     Route: 055
     Dates: start: 20220307, end: 20220307
  24. SEVOFLURANE [Suspect]
     Active Substance: SEVOFLURANE
     Indication: Sedative therapy
     Dosage: UNK %, FIRST DOSE
     Route: 055
     Dates: start: 20220110, end: 20220110
  25. SEVOFLURANE [Suspect]
     Active Substance: SEVOFLURANE
     Indication: Anaesthesia procedure
     Dosage: UNK %, SINGLE, FOURTH DOSE
     Route: 055
     Dates: start: 20220404, end: 20220404
  26. SEVOFLURANE [Suspect]
     Active Substance: SEVOFLURANE
     Dosage: UNK %, SINGLE, SECOND DOSE
     Route: 055
     Dates: start: 20220207, end: 20220207
  27. SEVOFLURANE [Suspect]
     Active Substance: SEVOFLURANE
     Dosage: UNK %, SINGLE, FIFTH DOSE
     Route: 055
     Dates: start: 20220627, end: 20220627
  28. SEVOFLURANE [Suspect]
     Active Substance: SEVOFLURANE
     Dosage: UNK %, SINGLE, SIXTH DOSE
     Route: 055
     Dates: start: 20220926, end: 20220926
  29. ZONISAMIDE [Suspect]
     Active Substance: ZONISAMIDE
     Indication: Epilepsy
     Dosage: UNK
     Route: 065
     Dates: start: 20220524

REACTIONS (2)
  - Epilepsy with myoclonic-atonic seizures [Not Recovered/Not Resolved]
  - Change in seizure presentation [Not Recovered/Not Resolved]

NARRATIVE: CASE EVENT DATE: 20220926
